FAERS Safety Report 13016469 (Version 2)
Quarter: 2017Q1

REPORT INFORMATION
  Report Type: Spontaneous
  Country: US (occurrence: US)
  Receive Date: 20161212
  Receipt Date: 20170303
  Transmission Date: 20170428
  Serious: Yes (Death, Hospitalization)
  Sender: FDA-Public Use
  Company Number: US-JNJFOC-20161107772

PATIENT
  Age: 78 Year
  Sex: Female
  Weight: 55.6 kg

DRUGS (3)
  1. XARELTO [Suspect]
     Active Substance: RIVAROXABAN
     Indication: ATRIAL FIBRILLATION
     Dosage: END DATE CONFLICTINGLY REPORTED AS 17-FEB-2014
     Route: 048
     Dates: start: 20140506
  2. XARELTO [Suspect]
     Active Substance: RIVAROXABAN
     Indication: CEREBROVASCULAR ACCIDENT PROPHYLAXIS
     Dosage: END DATE CONFLICTINGLY REPORTED AS 17-FEB-2014
     Route: 048
     Dates: start: 20140506
  3. XARELTO [Suspect]
     Active Substance: RIVAROXABAN
     Indication: THROMBOSIS PROPHYLAXIS
     Dosage: END DATE CONFLICTINGLY REPORTED AS 17-FEB-2014
     Route: 048
     Dates: start: 20140506

REACTIONS (1)
  - Haemorrhage intracranial [Fatal]

NARRATIVE: CASE EVENT DATE: 20150215
